FAERS Safety Report 9780740 (Version 3)
Quarter: 2014Q2

REPORT INFORMATION
  Report Type: Spontaneous
  Country: JP (occurrence: JP)
  Receive Date: 20131224
  Receipt Date: 20140418
  Transmission Date: 20141212
  Serious: Yes (Death, Hospitalization)
  Sender: FDA-Public Use
  Company Number: PHHY2013JP149698

PATIENT
  Age: 60 Year
  Sex: Male

DRUGS (2)
  1. GLIVEC [Suspect]
     Indication: GASTROINTESTINAL STROMAL TUMOUR
     Dosage: 200 MG, DAILY
     Route: 048
     Dates: start: 20130507, end: 20130713
  2. GLIVEC [Suspect]
     Dosage: 300 MG, DAILY
     Route: 048
     Dates: start: 20130714, end: 20140330

REACTIONS (3)
  - Peripheral arterial occlusive disease [Fatal]
  - Condition aggravated [Fatal]
  - Renal disorder [Recovered/Resolved]
